FAERS Safety Report 13539746 (Version 2)
Quarter: 2017Q3

REPORT INFORMATION
  Report Type: Spontaneous
  Country: US (occurrence: US)
  Receive Date: 20170512
  Receipt Date: 20170707
  Transmission Date: 20171127
  Serious: No
  Sender: FDA-Public Use
  Company Number: US-JNJFOC-20170311671

PATIENT
  Age: 34 Year
  Sex: Male
  Weight: 83.24 kg

DRUGS (9)
  1. VIIBRYD [Concomitant]
     Active Substance: VILAZODONE HYDROCHLORIDE
     Indication: AFFECTIVE DISORDER
     Dosage: EVERY MORNING
     Route: 065
  2. VYVANSE [Concomitant]
     Active Substance: LISDEXAMFETAMINE DIMESYLATE
     Indication: ATTENTION DEFICIT/HYPERACTIVITY DISORDER
     Dosage: EVERY MORNING
     Route: 065
     Dates: start: 20170311
  3. INVEGA SUSTENNA [Suspect]
     Active Substance: PALIPERIDONE PALMITATE
     Indication: BIPOLAR DISORDER
     Route: 030
  4. KLONOPIN [Concomitant]
     Active Substance: CLONAZEPAM
     Indication: POST-TRAUMATIC STRESS DISORDER
     Route: 065
     Dates: start: 20170306
  5. KLONOPIN [Concomitant]
     Active Substance: CLONAZEPAM
     Indication: ANXIETY
     Route: 065
     Dates: start: 20170306
  6. RISPERDAL [Concomitant]
     Active Substance: RISPERIDONE
     Indication: BIPOLAR DISORDER
     Route: 065
  7. INVEGA SUSTENNA [Suspect]
     Active Substance: PALIPERIDONE PALMITATE
     Indication: BIPOLAR DISORDER
     Route: 030
     Dates: end: 20170222
  8. INVEGA SUSTENNA [Suspect]
     Active Substance: PALIPERIDONE PALMITATE
     Indication: BIPOLAR DISORDER
     Route: 030
     Dates: start: 20160807
  9. RISPERDAL [Concomitant]
     Active Substance: RISPERIDONE
     Indication: BIPOLAR DISORDER
     Route: 065
     Dates: start: 20170306

REACTIONS (4)
  - Therapeutic response decreased [Unknown]
  - Off label use [Unknown]
  - Product use in unapproved indication [Unknown]
  - Mood altered [Unknown]

NARRATIVE: CASE EVENT DATE: 20160707
